FAERS Safety Report 20913600 (Version 1)
Quarter: 2022Q2

REPORT INFORMATION
  Report Type: Other
  Country: ZA (occurrence: ZA)
  Receive Date: 20220604
  Receipt Date: 20220604
  Transmission Date: 20220721
  Serious: Yes (Other)
  Sender: FDA-Public Use
  Company Number: ZA-MACLEODS PHARMA UK LTD-MAC2022035775

PATIENT

DRUGS (2)
  1. EMTRICITABINE\TENOFOVIR DISOPROXIL [Suspect]
     Active Substance: EMTRICITABINE\TENOFOVIR DISOPROXIL
     Indication: Prophylaxis against HIV infection
     Dosage: 445 MILLIGRAM, QD; 1 COURSE, EXPOSURE AT PRIOR TO CONCEPTION AND FIRST TRIMESTER
     Route: 048
     Dates: start: 20211027, end: 20211221
  2. ISLATRAVIR [Suspect]
     Active Substance: ISLATRAVIR
     Indication: Product used for unknown indication
     Dosage: 60 MILLIGRAM/MONTHLY; EXPOSURE DURING PRIOR TO CONCEPTION-YES AND FIRST TRIMESTER
     Route: 065

REACTIONS (2)
  - Abortion spontaneous [Unknown]
  - Maternal exposure during pregnancy [Unknown]

NARRATIVE: CASE EVENT DATE: 20211220
